FAERS Safety Report 12448597 (Version 1)
Quarter: 2016Q2

REPORT INFORMATION
  Report Type: Spontaneous
  Country: CH (occurrence: CH)
  Receive Date: 20160608
  Receipt Date: 20160608
  Transmission Date: 20160815
  Serious: Yes (Hospitalization)
  Sender: FDA-Public Use
  Company Number: CH-ASTRAZENECA-2016SE58563

PATIENT
  Age: 23129 Day
  Sex: Male

DRUGS (9)
  1. HALDOL [Suspect]
     Active Substance: HALOPERIDOL
     Indication: PSYCHOTIC DISORDER
     Route: 048
     Dates: start: 20160508, end: 20160511
  2. REMERON [Suspect]
     Active Substance: MIRTAZAPINE
     Route: 048
     Dates: start: 20160412, end: 20160507
  3. LUMIGAN AUGENTROPFEN [Concomitant]
     Route: 047
  4. ZOLPIDEM [Concomitant]
     Active Substance: ZOLPIDEM\ZOLPIDEM TARTRATE
     Route: 048
     Dates: start: 201604, end: 20160508
  5. QUETIAPINE. [Suspect]
     Active Substance: QUETIAPINE
     Indication: PSYCHOTIC DISORDER
     Route: 048
     Dates: start: 20160405, end: 20160509
  6. SEROQUEL XR [Suspect]
     Active Substance: QUETIAPINE FUMARATE
     Indication: PSYCHOTIC DISORDER
     Route: 048
     Dates: start: 20160422, end: 20160509
  7. AKINETON INJEKTIONSLOESUNG [Concomitant]
     Dosage: 2.0MG UNKNOWN
     Route: 030
     Dates: start: 20160508, end: 20160508
  8. DISTRANEURIN [Concomitant]
     Active Substance: CLOMETHIAZOLE
     Route: 048
     Dates: start: 201604
  9. COSOPT AUGENTROPFEN [Concomitant]

REACTIONS (4)
  - Hallucination [Unknown]
  - Anxiety [Unknown]
  - Urinary retention [Unknown]
  - Psychomotor hyperactivity [Unknown]

NARRATIVE: CASE EVENT DATE: 20160511
